FAERS Safety Report 7221826-5 (Version None)
Quarter: 2011Q1

REPORT INFORMATION
  Report Type: 
  Country: None (occurrence: None)
  Receive Date: 20110112
  Receipt Date: 20110107
  Transmission Date: 20110831
  Serious: Yes (Hospitalization)
  Sender: FDA-Public Use
  Company Number: A0891300A

PATIENT
  Age: 79 Year
  Sex: Male
  Weight: 78.2 kg

DRUGS (2)
  1. ADVAIR [Suspect]
     Indication: BRONCHIECTASIS
     Dosage: 1PUFF TWICE PER DAY
     Route: 055
     Dates: start: 20081101, end: 20091101
  2. ALBUTEROL [Concomitant]

REACTIONS (7)
  - PNEUMONIA [None]
  - QUALITY OF LIFE DECREASED [None]
  - DYSPNOEA [None]
  - HERPES ZOSTER [None]
  - RESPIRATORY DISORDER [None]
  - CATARACT [None]
  - DISABILITY [None]
